FAERS Safety Report 5234481-0 (Version None)
Quarter: 2007Q1

REPORT INFORMATION
  Report Type: 
  Country: None (occurrence: None)
  Receive Date: 20070209
  Receipt Date: 20070205
  Transmission Date: 20070707
  Serious: Yes (Hospitalization)
  Sender: FDA-Public Use
  Company Number: NL-GLAXOSMITHKLINE-B0457211A

PATIENT

DRUGS (1)
  1. SENSODYNE TOOTHPASTE [Suspect]

REACTIONS (1)
  - DYSPNOEA [None]
